FAERS Safety Report 5709445-0 (Version None)
Quarter: 2008Q2

REPORT INFORMATION
  Report Type: 
  Country: None (occurrence: None)
  Receive Date: 20080418
  Receipt Date: 20080414
  Transmission Date: 20081010
  Serious: Yes (Hospitalization)
  Sender: FDA-Public Use
  Company Number: GB-JNJFOC-20080403908

PATIENT
  Age: 64 Year
  Sex: Female
  Weight: 95 kg

DRUGS (4)
  1. RISPERDAL CONSTA [Suspect]
     Indication: SCHIZOPHRENIA
     Route: 030
  2. RISPERDAL CONSTA [Suspect]
     Indication: DELUSION
     Route: 030
  3. PROCYCLIDINE HYDROCHLORIDE 2MG TAB [Concomitant]
     Indication: DRUG USE FOR UNKNOWN INDICATION
  4. SEMISODIUM VALPROATE [Concomitant]
     Indication: MOOD ALTERED
     Route: 048

REACTIONS (5)
  - DYSARTHRIA [None]
  - DYSPHAGIA [None]
  - HYPOTHERMIA [None]
  - MOBILITY DECREASED [None]
  - PNEUMONIA [None]
